FAERS Safety Report 5792079-X (Version None)
Quarter: 2008Q2

REPORT INFORMATION
  Report Type: 
  Country: None (occurrence: None)
  Receive Date: 20080625
  Receipt Date: 20080515
  Transmission Date: 20081010
  Serious: No
  Sender: FDA-Public Use
  Company Number: US-WYE-H04120408

PATIENT
  Age: 68 Year
  Sex: Male

DRUGS (1)
  1. TORISEL [Suspect]
     Indication: RENAL CELL CARCINOMA
     Dosage: 1 DOSE 1X PER 1 WK; 6 DOSES

REACTIONS (3)
  - NAIL DISCOLOURATION [None]
  - NAIL DISORDER [None]
  - ONYCHOMYCOSIS [None]
